FAERS Safety Report 6274603-6 (Version None)
Quarter: 2009Q3

REPORT INFORMATION
  Report Type: 
  Country: None (occurrence: None)
  Receive Date: 20090717
  Receipt Date: 20090709
  Transmission Date: 20100115
  Serious: Yes (Hospitalization)
  Sender: FDA-Public Use
  Company Number: 2008AL011791

PATIENT
  Age: 65 Year
  Sex: Female

DRUGS (10)
  1. DIGOXIN [Suspect]
     Indication: HEART RATE IRREGULAR
     Dosage: 0.25MG, PO
     Route: 048
     Dates: start: 20070201, end: 20070601
  2. COUMADIN [Concomitant]
  3. METOPROLOL SUCCINATE [Concomitant]
  4. OMEPRAZOLE [Concomitant]
  5. MORPHINE SULFATE [Concomitant]
  6. CARTIA XT [Concomitant]
  7. SIMVASTATIN [Concomitant]
  8. AMLODIPINE [Concomitant]
  9. ZANTAC [Concomitant]
  10. RANITIDINE [Concomitant]

REACTIONS (14)
  - ALOPECIA [None]
  - BACK PAIN [None]
  - BLINDNESS UNILATERAL [None]
  - DECREASED APPETITE [None]
  - DELIRIUM [None]
  - GLAUCOMA [None]
  - HEART RATE DECREASED [None]
  - HEART VALVE INCOMPETENCE [None]
  - HYPERTENSION [None]
  - INSOMNIA [None]
  - PNEUMONIA [None]
  - RETINAL VEIN OCCLUSION [None]
  - THERAPEUTIC AGENT TOXICITY [None]
  - TOOTH LOSS [None]
